FAERS Safety Report 10168099 (Version 4)
Quarter: 2014Q4

REPORT INFORMATION
  Report Type: Spontaneous
  Country: PT (occurrence: PT)
  Receive Date: 20140512
  Receipt Date: 20141016
  Transmission Date: 20150528
  Serious: Yes (Life-Threatening, Hospitalization, Disabling, Other)
  Sender: FDA-Public Use
  Company Number: PT-ASTRAZENECA-2014SE31854

PATIENT
  Age: 61 Year
  Sex: Male
  Weight: 80 kg

DRUGS (10)
  1. ESOMEPRAZOL [Concomitant]
     Active Substance: ESOMEPRAZOLE
     Indication: PROPHYLAXIS
     Route: 048
     Dates: start: 20140502, end: 20140519
  2. CEFAZOLINA [Concomitant]
     Active Substance: CEFAZOLIN SODIUM
     Indication: URINARY TRACT INFECTION
     Route: 042
     Dates: start: 20140505, end: 20140507
  3. ACETYLSALICYLIC ACID [Interacting]
     Active Substance: ASPIRIN
     Indication: ACUTE MYOCARDIAL INFARCTION
     Route: 048
     Dates: start: 20140502, end: 20140505
  4. ENOXAPARIN [Concomitant]
     Active Substance: ENOXAPARIN
  5. CARVEDILOL. [Concomitant]
     Active Substance: CARVEDILOL
     Indication: CORONARY ARTERY DISEASE
     Route: 048
     Dates: start: 20140504, end: 20140506
  6. REOPRO [Interacting]
     Active Substance: ABCIXIMAB
     Indication: ARTERIAL CATHETERISATION
     Dosage: 20MG + 19.4MG, 32 /AS NECESSARY
     Route: 042
     Dates: start: 20140502, end: 20140503
  7. HEPARINA SODICA [Interacting]
     Active Substance: HEPARIN SODIUM
     Indication: ARTERIAL CATHETERISATION
     Dosage: 4500U.I. SINGLE DOSE
     Route: 013
     Dates: start: 20140502, end: 20140502
  8. CLORETO DE S?DIO [Concomitant]
     Route: 042
     Dates: start: 20140502, end: 20140504
  9. BRILIQUE [Suspect]
     Active Substance: TICAGRELOR
     Indication: ACUTE MYOCARDIAL INFARCTION
     Route: 048
     Dates: start: 20140502, end: 20140502
  10. ATORVASTATINA [Concomitant]
     Active Substance: ATORVASTATIN
     Indication: DYSLIPIDAEMIA
     Route: 048
     Dates: start: 20140502, end: 20140519

REACTIONS (9)
  - Fatigue [Recovered/Resolved]
  - Haematuria [Unknown]
  - Drug interaction [Unknown]
  - Headache [Recovered/Resolved]
  - Brain herniation [Recovered/Resolved with Sequelae]
  - Haemorrhagic stroke [Recovering/Resolving]
  - Haemorrhage intracranial [Recovered/Resolved with Sequelae]
  - Ischaemic stroke [Recovering/Resolving]
  - Cerebral haematoma [Recovered/Resolved with Sequelae]

NARRATIVE: CASE EVENT DATE: 201405
